FAERS Safety Report 17995127 (Version 2)
Quarter: 2020Q3

REPORT INFORMATION
  Report Type: Spontaneous
  Country: US (occurrence: US)
  Receive Date: 20200708
  Receipt Date: 20200710
  Transmission Date: 20201103
  Serious: Yes (Other)
  Sender: FDA-Public Use
  Company Number: US-APOTEX-2020AP012821

PATIENT

DRUGS (3)
  1. ATORVASTATIN [Suspect]
     Active Substance: ATORVASTATIN
     Indication: BLOOD CHOLESTEROL INCREASED
     Dosage: 1 DOSAGE FORM, QD
     Route: 065
  2. ATORVASTATIN [Suspect]
     Active Substance: ATORVASTATIN
     Dosage: 1 DOSAGE FORM, QD
     Route: 065
  3. ATORVASTATIN [Suspect]
     Active Substance: ATORVASTATIN
     Indication: BLOOD CHOLESTEROL INCREASED
     Dosage: 1 DOSAGE FORM, QD
     Route: 065

REACTIONS (3)
  - Diabetes mellitus [Unknown]
  - Skin discolouration [Unknown]
  - Ocular icterus [Unknown]
